FAERS Safety Report 4745312-7 (Version None)
Quarter: 2005Q3

REPORT INFORMATION
  Report Type: 
  Country: None (occurrence: None)
  Receive Date: 20050812
  Receipt Date: 20050729
  Transmission Date: 20060218
  Serious: Yes (Other)
  Sender: FDA-Public Use
  Company Number: 2005112794

PATIENT
  Age: 57 Year
  Sex: Female

DRUGS (2)
  1. CABERGOLINE [Suspect]
     Indication: PARKINSON'S DISEASE
  2. MADOPAR (BENSERAZIDE HYDROCHLORIDE, LEVODOPA) [Concomitant]

REACTIONS (1)
  - PATHOLOGICAL GAMBLING [None]
